FAERS Safety Report 15555691 (Version 5)
Quarter: 2019Q2

REPORT INFORMATION
  Report Type: Report from Study
  Country: US (occurrence: US)
  Receive Date: 20181026
  Receipt Date: 20190412
  Transmission Date: 20190711
  Serious: Yes (Hospitalization)
  Sender: FDA-Public Use
  Company Number: US-JNJFOC-20180924312

PATIENT
  Age: 76 Year
  Sex: Male

DRUGS (7)
  1. DOXYCYCLINE. [Concomitant]
     Active Substance: DOXYCYCLINE
  2. FINASTERIDE. [Concomitant]
     Active Substance: FINASTERIDE
  3. TYLENOL [Concomitant]
     Active Substance: ACETAMINOPHEN
  4. FLUCONAZOLE. [Concomitant]
     Active Substance: FLUCONAZOLE
  5. IMBRUVICA [Suspect]
     Active Substance: IBRUTINIB
     Indication: CHRONIC LYMPHOCYTIC LEUKAEMIA
     Route: 048
     Dates: start: 20180401, end: 20181101
  6. IMBRUVICA [Suspect]
     Active Substance: IBRUTINIB
     Indication: CHRONIC LYMPHOCYTIC LEUKAEMIA
     Route: 048
     Dates: start: 20180902
  7. RAPAFLO [Concomitant]
     Active Substance: SILODOSIN

REACTIONS (13)
  - Urinary tract disorder [Unknown]
  - Heart rate irregular [Unknown]
  - Weight decreased [Recovered/Resolved]
  - Fall [Unknown]
  - Impaired reasoning [Recovered/Resolved]
  - Oropharyngeal pain [Recovered/Resolved]
  - Platelet count decreased [Unknown]
  - Anaemia [Recovering/Resolving]
  - Traumatic intracranial haematoma [Recovered/Resolved]
  - Influenza [Recovered/Resolved]
  - Pneumonia [Recovered/Resolved]
  - Atrial fibrillation [Recovered/Resolved]
  - Muscle atrophy [Unknown]

NARRATIVE: CASE EVENT DATE: 2018
